FAERS Safety Report 23015164 (Version 1)
Quarter: 2023Q4

REPORT INFORMATION
  Report Type: Report from Study
  Country: US (occurrence: US)
  Receive Date: 20231002
  Receipt Date: 20231002
  Transmission Date: 20240109
  Serious: Yes (Other)
  Sender: FDA-Public Use
  Company Number: US-UCBSA-2023047185

PATIENT
  Sex: Female

DRUGS (1)
  1. LEVETIRACETAM [Suspect]
     Active Substance: LEVETIRACETAM
     Indication: Seizure
     Dosage: 2000 MILLIGRAM (XR 500MG - 4 TABLETS BY MOUTH DAILY)
     Route: 048

REACTIONS (2)
  - Seizure [Not Recovered/Not Resolved]
  - Memory impairment [Not Recovered/Not Resolved]
